FAERS Safety Report 5938489-9 (Version None)
Quarter: 2008Q4

REPORT INFORMATION
  Report Type: 
  Country: None (occurrence: None)
  Receive Date: 20081103
  Receipt Date: 20081023
  Transmission Date: 20090506
  Serious: Yes (Other)
  Sender: FDA-Public Use
  Company Number: US-AMGEN-QUU315182

PATIENT
  Age: 66 Year
  Sex: Male

DRUGS (3)
  1. NEULASTA [Suspect]
     Indication: CHEMOTHERAPY
     Route: 065
     Dates: start: 20081017
  2. CISPLATIN [Concomitant]
     Route: 065
     Dates: start: 20081016
  3. TAXOTERE [Concomitant]
     Route: 065
     Dates: start: 20081016

REACTIONS (2)
  - FEELING ABNORMAL [None]
  - THERAPEUTIC RESPONSE DECREASED [None]
